FAERS Safety Report 23871743 (Version 4)
Quarter: 2025Q3

REPORT INFORMATION
  Report Type: Report from Study
  Country: BR (occurrence: BR)
  Receive Date: 20240520
  Receipt Date: 20250729
  Transmission Date: 20251021
  Serious: Yes (Other)
  Sender: TAKEDA
  Company Number: BR-TAKEDA-2022TUS057437

PATIENT
  Age: 61 Year
  Sex: Female

DRUGS (2)
  1. VEDOLIZUMAB [Suspect]
     Active Substance: VEDOLIZUMAB
     Indication: Crohn^s disease
  2. ATENOLOL [Concomitant]
     Active Substance: ATENOLOL
     Indication: Hypertension
     Dosage: 50 MILLIGRAM, QD

REACTIONS (17)
  - Cataract [Recovering/Resolving]
  - Procedural pain [Unknown]
  - Sneezing [Unknown]
  - Blood pressure increased [Unknown]
  - Hypersensitivity [Unknown]
  - Oropharyngeal pain [Unknown]
  - Inappropriate schedule of product administration [Unknown]
  - Product availability issue [Unknown]
  - Impaired work ability [Unknown]
  - Illness [Recovered/Resolved]
  - Pain [Recovered/Resolved]
  - Motion sickness [Recovered/Resolved]
  - Dysphonia [Recovered/Resolved]
  - Vitamin D decreased [Recovered/Resolved]
  - Cyst [Recovered/Resolved]
  - Malaise [Recovered/Resolved]
  - Cough [Recovered/Resolved]

NARRATIVE: CASE EVENT DATE: 20230524
